FAERS Safety Report 6060708-1 (Version None)
Quarter: 2009Q1

REPORT INFORMATION
  Report Type: 
  Country: None (occurrence: None)
  Receive Date: 20090202
  Receipt Date: 20090102
  Transmission Date: 20090719
  Serious: No
  Sender: FDA-Public Use
  Company Number: US-BAYER-200910220NA

PATIENT
  Age: 85 Year
  Sex: Female
  Weight: 73 kg

DRUGS (2)
  1. AVELOX [Suspect]
     Indication: SINUSITIS
     Dates: start: 20081230
  2. INSULIN [Concomitant]

REACTIONS (1)
  - HALLUCINATION [None]
